FAERS Safety Report 10004384 (Version 4)
Quarter: 2014Q3

REPORT INFORMATION
  Report Type: Spontaneous
  Country: DK (occurrence: DK)
  Receive Date: 20140312
  Receipt Date: 20140926
  Transmission Date: 20150326
  Serious: Yes (Other)
  Sender: FDA-Public Use
  Company Number: PHHY2014DK029550

PATIENT
  Sex: Male
  Weight: 27 kg

DRUGS (2)
  1. CONCERTA [Suspect]
     Active Substance: METHYLPHENIDATE HYDROCHLORIDE
     Indication: ATTENTION DEFICIT/HYPERACTIVITY DISORDER
     Dosage: 36 DF, QD
     Route: 048
     Dates: start: 2003
  2. RITALIN [Suspect]
     Active Substance: METHYLPHENIDATE HYDROCHLORIDE
     Indication: ATTENTION DEFICIT/HYPERACTIVITY DISORDER
     Dosage: 10 MG, QD
     Dates: start: 2004

REACTIONS (9)
  - Palpitations [Unknown]
  - Decreased appetite [Not Recovered/Not Resolved]
  - Atrial fibrillation [Recovered/Resolved]
  - Insomnia [Not Recovered/Not Resolved]
  - Painful erection [Recovered/Resolved]
  - Chest pain [Unknown]
  - Tic [Not Recovered/Not Resolved]
  - Dyspnoea [Unknown]
  - Abdominal pain upper [Recovered/Resolved]

NARRATIVE: CASE EVENT DATE: 2008
